FAERS Safety Report 15222087 (Version 1)
Quarter: 2018Q3

REPORT INFORMATION
  Report Type: Spontaneous
  Country: US (occurrence: US)
  Receive Date: 20180705
  Receipt Date: 20180705
  Transmission Date: 20181010
  Serious: Yes (Hospitalization)
  Sender: FDA-Public Use
  Company Number: None

PATIENT
  Age: 41 Year
  Sex: Female
  Weight: 65 kg

DRUGS (1)
  1. LISINOPRIL. [Suspect]
     Active Substance: LISINOPRIL
     Indication: HYPERTENSION
     Route: 048
     Dates: start: 20171231, end: 20180301

REACTIONS (5)
  - Intestinal angioedema [None]
  - Oesophagitis [None]
  - Acute kidney injury [None]
  - Weight decreased [None]
  - Eructation [None]

NARRATIVE: CASE EVENT DATE: 20180301
